FAERS Safety Report 9738692 (Version 1)
Quarter: 2013Q4

REPORT INFORMATION
  Report Type: Spontaneous
  Country: US (occurrence: US)
  Receive Date: 20131209
  Receipt Date: 20131209
  Transmission Date: 20140711
  Serious: No
  Sender: FDA-Public Use
  Company Number: US-BIOGENIDEC-2013BI116781

PATIENT
  Age: 38 Year
  Sex: Male

DRUGS (2)
  1. TYSABRI [Suspect]
     Indication: MULTIPLE SCLEROSIS
     Route: 042
     Dates: start: 20060929, end: 20130612
  2. TECFIDERA [Concomitant]
     Indication: MULTIPLE SCLEROSIS
     Dates: start: 20130904

REACTIONS (1)
  - Dysgraphia [Not Recovered/Not Resolved]
